FAERS Safety Report 12606915 (Version 1)
Quarter: 2016Q3

REPORT INFORMATION
  Report Type: Report from Study
  Country: CA (occurrence: CA)
  Receive Date: 20160729
  Receipt Date: 20160729
  Transmission Date: 20161109
  Serious: Yes (Hospitalization, Disabling, Other)
  Sender: FDA-Public Use
  Company Number: CA-AMGEN-CANSL2016085970

PATIENT
  Age: 81 Year
  Sex: Male
  Weight: 80 kg

DRUGS (2)
  1. CALCIUM ACETATE. [Concomitant]
     Active Substance: CALCIUM ACETATE
     Dosage: 167 MG, BID (LUNCH AND DINNER)
     Dates: start: 20160622
  2. ARANESP [Suspect]
     Active Substance: DARBEPOETIN ALFA
     Indication: NEPHROGENIC ANAEMIA
     Dosage: 60 MCG, QWK
     Route: 058
     Dates: start: 20160622, end: 20160721

REACTIONS (8)
  - Hospitalisation [Unknown]
  - Dyskinesia [Recovered/Resolved]
  - Headache [Recovered/Resolved]
  - Surgery [Unknown]
  - Stress [Unknown]
  - Mobility decreased [Unknown]
  - Dizziness [Unknown]
  - Memory impairment [Recovering/Resolving]

NARRATIVE: CASE EVENT DATE: 20160622
